FAERS Safety Report 6750616-2 (Version None)
Quarter: 2010Q2

REPORT INFORMATION
  Report Type: 
  Country: None (occurrence: None)
  Receive Date: 20100527
  Receipt Date: 20100520
  Transmission Date: 20101027
  Serious: Yes (Other)
  Sender: FDA-Public Use
  Company Number: ALD1-AT-2010-0024

PATIENT
  Age: 33 Year
  Sex: Female

DRUGS (4)
  1. METHYLDOPA [Suspect]
  2. MAGNESIUM (MAGNESIUM) (MAGNESIUM) [Suspect]
  3. PREDNISOLONE [Suspect]
  4. MEZLOCILLIN (MEZLOCILLIN) (MEZLOCILLIN) [Suspect]

REACTIONS (5)
  - CAESAREAN SECTION [None]
  - DRUG EXPOSURE DURING PREGNANCY [None]
  - HEPATIC ENZYME ABNORMAL [None]
  - PLATELET COUNT DECREASED [None]
  - PREMATURE LABOUR [None]
